FAERS Safety Report 18966260 (Version 4)
Quarter: 2021Q3

REPORT INFORMATION
  Report Type: Report from Study
  Country: US (occurrence: US)
  Receive Date: 20210303
  Receipt Date: 20210901
  Transmission Date: 20211014
  Serious: Yes (Death, Hospitalization, Other)
  Sender: FDA-Public Use
  Company Number: NVSC2021US049851

PATIENT
  Sex: Male

DRUGS (2)
  1. ELIQUIS [Concomitant]
     Active Substance: APIXABAN
     Indication: PRODUCT USED FOR UNKNOWN INDICATION
     Dosage: UNK
     Route: 065
  2. ENTRESTO [Suspect]
     Active Substance: SACUBITRIL\VALSARTAN
     Indication: PRODUCT USED FOR UNKNOWN INDICATION
     Dosage: 50 MG, BID (24/26MG)
     Route: 048
     Dates: start: 20200501

REACTIONS (8)
  - Renal failure [Fatal]
  - Fluid retention [Unknown]
  - Confusional state [Unknown]
  - Pneumonia [Fatal]
  - Eye haemorrhage [Unknown]
  - Weight increased [Unknown]
  - Cardiac failure congestive [Fatal]
  - Swelling [Unknown]
